FAERS Safety Report 19564549 (Version 3)
Quarter: 2021Q3

REPORT INFORMATION
  Report Type: Spontaneous
  Country: US (occurrence: US)
  Receive Date: 20210715
  Receipt Date: 20210912
  Transmission Date: 20211014
  Serious: Yes (Other)
  Sender: FDA-Public Use
  Company Number: US-JNJFOC-20210724593

PATIENT
  Age: 46 Year
  Sex: Female

DRUGS (26)
  1. APRISO [Concomitant]
     Active Substance: MESALAMINE
     Dates: start: 20181227, end: 20191220
  2. BUDESONIDE. [Concomitant]
     Active Substance: BUDESONIDE
     Indication: ABDOMINAL PAIN UPPER
     Dates: start: 20160831, end: 20190120
  3. ELMIRON [Suspect]
     Active Substance: PENTOSAN POLYSULFATE SODIUM
     Route: 048
     Dates: start: 20150723, end: 20160301
  4. HYDROXYZINE HYDROCHLORIDE. [Concomitant]
     Active Substance: HYDROXYZINE HYDROCHLORIDE
     Indication: ANTIALLERGIC THERAPY
     Dates: start: 20131030, end: 20140507
  5. ZONISAMIDE. [Concomitant]
     Active Substance: ZONISAMIDE
     Indication: SEIZURE
     Dates: start: 20131117, end: 20160429
  6. ELMIRON [Suspect]
     Active Substance: PENTOSAN POLYSULFATE SODIUM
     Route: 048
     Dates: start: 20160408, end: 20160710
  7. GABAPENTIN. [Concomitant]
     Active Substance: GABAPENTIN
     Indication: FIBROMYALGIA
     Dates: start: 20150820
  8. ELMIRON [Suspect]
     Active Substance: PENTOSAN POLYSULFATE SODIUM
     Route: 048
     Dates: start: 20131030, end: 20150427
  9. PANTOPRAZOLE [Concomitant]
     Active Substance: PANTOPRAZOLE
     Indication: GASTROOESOPHAGEAL REFLUX DISEASE
     Dates: start: 20160930
  10. XIFAXAN [Concomitant]
     Active Substance: RIFAXIMIN
     Indication: HEPATIC STEATOSIS
     Dates: start: 20180501
  11. APRISO [Concomitant]
     Active Substance: MESALAMINE
     Indication: ABDOMINAL PAIN UPPER
     Dates: start: 20151228, end: 20160419
  12. OMEPRAZOLE. [Concomitant]
     Active Substance: OMEPRAZOLE
     Indication: DYSPEPSIA
     Dates: start: 20151104, end: 20161002
  13. ELMIRON [Suspect]
     Active Substance: PENTOSAN POLYSULFATE SODIUM
     Route: 048
     Dates: start: 20160805, end: 20200324
  14. ELMIRON [Suspect]
     Active Substance: PENTOSAN POLYSULFATE SODIUM
     Route: 048
     Dates: start: 20180423, end: 20200521
  15. PROPRANOLOL [Concomitant]
     Active Substance: PROPRANOLOL HYDROCHLORIDE
     Indication: ABDOMINAL PAIN UPPER
     Dates: start: 20180911
  16. SOLIFENACIN [Concomitant]
     Active Substance: SOLIFENACIN
     Indication: BLADDER PAIN
     Dates: start: 20200311
  17. VITAMIN D [ERGOCALCIFEROL] [Concomitant]
     Active Substance: ERGOCALCIFEROL
     Indication: MINERAL SUPPLEMENTATION
     Dates: start: 2020
  18. ELMIRON [Suspect]
     Active Substance: PENTOSAN POLYSULFATE SODIUM
     Route: 048
     Dates: start: 20200622, end: 20200926
  19. ELMIRON [Suspect]
     Active Substance: PENTOSAN POLYSULFATE SODIUM
     Indication: CYSTITIS INTERSTITIAL
     Route: 048
     Dates: start: 2007
  20. AMITRIPTYLINE [Concomitant]
     Active Substance: AMITRIPTYLINE
     Indication: ANTIDEPRESSANT THERAPY
     Dates: start: 20150723
  21. LOSARTAN POTASSIUM. [Concomitant]
     Active Substance: LOSARTAN POTASSIUM
     Indication: HYPERTENSION
     Dates: start: 20131126
  22. METFORMIN [Concomitant]
     Active Substance: METFORMIN HYDROCHLORIDE
     Indication: BLOOD GLUCOSE INCREASED
     Dates: start: 20170203
  23. MESALAMINE. [Concomitant]
     Active Substance: MESALAMINE
     Indication: ABDOMINAL PAIN UPPER
     Dates: start: 20191220
  24. DICYCLOMINE [Concomitant]
     Active Substance: DICYCLOMINE HYDROCHLORIDE
     Indication: ABDOMINAL PAIN UPPER
     Dates: start: 20160805
  25. DULOXETINE. [Concomitant]
     Active Substance: DULOXETINE
     Indication: NEURALGIA
     Dates: start: 20171031
  26. VESICARE [Concomitant]
     Active Substance: SOLIFENACIN SUCCINATE
     Indication: BLADDER PAIN
     Dates: start: 20160213, end: 20200219

REACTIONS (3)
  - Maculopathy [Unknown]
  - Product use issue [Unknown]
  - Off label use [Unknown]

NARRATIVE: CASE EVENT DATE: 20131030
